FAERS Safety Report 11233000 (Version 1)
Quarter: 2015Q3

REPORT INFORMATION
  Report Type: Spontaneous
  Country: US (occurrence: US)
  Receive Date: 20150701
  Receipt Date: 20150701
  Transmission Date: 20151125
  Serious: Yes (Hospitalization, Other)
  Sender: FDA-Public Use
  Company Number: US-GLAXOSMITHKLINE INC.-US2015GSK091778

PATIENT
  Age: 36 Year
  Sex: Male

DRUGS (1)
  1. VOTRIENT [Suspect]
     Active Substance: PAZOPANIB HYDROCHLORIDE
     Indication: METASTASES TO LUNG
     Dosage: 800 MG, QD
     Route: 048
     Dates: start: 20141226, end: 20150625

REACTIONS (3)
  - Pulmonary embolism [Unknown]
  - Pulmonary oedema [Unknown]
  - Surgery [Unknown]

NARRATIVE: CASE EVENT DATE: 20150330
